FAERS Safety Report 24236451 (Version 1)
Quarter: 2024Q3

REPORT INFORMATION
  Report Type: Report from Study
  Country: US (occurrence: None)
  Receive Date: 20240822
  Receipt Date: 20240822
  Transmission Date: 20241016
  Serious: Yes (Other)
  Sender: ASTRAZENECA
  Company Number: 2021A613604

PATIENT
  Sex: Female

DRUGS (1)
  1. LYNPARZA [Suspect]
     Active Substance: OLAPARIB
     Indication: Ovarian cancer
     Route: 048
     Dates: start: 20210701

REACTIONS (7)
  - Blood pressure diastolic decreased [Recovered/Resolved]
  - Dysphagia [Unknown]
  - Oropharyngeal discomfort [Not Recovered/Not Resolved]
  - Abdominal discomfort [Not Recovered/Not Resolved]
  - Fatigue [Recovered/Resolved]
  - Red blood cell count decreased [Unknown]
  - Dyspnoea [Unknown]
